FAERS Safety Report 22033675 (Version 3)
Quarter: 2023Q4

REPORT INFORMATION
  Report Type: Spontaneous
  Country: US (occurrence: US)
  Receive Date: 20230224
  Receipt Date: 20231115
  Transmission Date: 20240110
  Serious: No
  Sender: FDA-Public Use
  Company Number: US-BRISTOL-MYERS SQUIBB COMPANY-2023-024688

PATIENT
  Age: 70 Year
  Sex: Female
  Weight: 102.51 kg

DRUGS (1)
  1. REVLIMID [Suspect]
     Active Substance: LENALIDOMIDE
     Indication: Plasma cell myeloma
     Dosage: D 1-21 Q 28 DAYS
     Route: 048
     Dates: start: 20110623

REACTIONS (5)
  - COVID-19 [Not Recovered/Not Resolved]
  - Product dose omission issue [Unknown]
  - Memory impairment [Unknown]
  - Gastroenteritis viral [Recovering/Resolving]
  - Product distribution issue [Unknown]

NARRATIVE: CASE EVENT DATE: 20230211
